FAERS Safety Report 9826610 (Version 1)
Quarter: 2014Q1

REPORT INFORMATION
  Report Type: Spontaneous
  Country: US (occurrence: US)
  Receive Date: 20140117
  Receipt Date: 20140117
  Transmission Date: 20141002
  Serious: No
  Sender: FDA-Public Use
  Company Number: US-BIOGENIDEC-2014BI001610

PATIENT
  Age: 40 Year
  Sex: Female

DRUGS (6)
  1. TECFIDERA [Suspect]
     Indication: MULTIPLE SCLEROSIS
     Route: 048
     Dates: start: 201312
  2. TECFIDERA [Suspect]
     Indication: MULTIPLE SCLEROSIS
     Route: 048
  3. VITAMIN B PLUS [Concomitant]
  4. VITAMIN D [Concomitant]
  5. IRON [Concomitant]
  6. VITAMIN C [Concomitant]

REACTIONS (3)
  - Lip blister [Unknown]
  - Weight increased [Unknown]
  - Flushing [Unknown]
